FAERS Safety Report 8170992 (Version 4)
Quarter: 2013Q4

REPORT INFORMATION
  Report Type: Spontaneous
  Country: None (occurrence: GB)
  Receive Date: 20111006
  Receipt Date: 20131029
  Transmission Date: 20140711
  Serious: Yes (Death, Other)
  Sender: FDA-Public Use
  Company Number: GB-BAXTER-2011BH030760

PATIENT
  Age: 8 Year
  Sex: Female
  Weight: 22.4 kg

DRUGS (22)
  1. CYCLOPHOSPHAMIDE INJECTION 1G [Suspect]
     Indication: BONE MARROW FAILURE
     Route: 042
     Dates: start: 20110429, end: 20110502
  2. BUSULFAN [Suspect]
     Indication: BONE MARROW FAILURE
     Route: 048
     Dates: start: 20110425, end: 20110428
  3. MABCAMPATH [Suspect]
     Indication: BONE MARROW TRANSPLANT
     Route: 042
     Dates: start: 20110426, end: 20110428
  4. METHOTREXATE GENERIC [Suspect]
     Indication: GRAFT VERSUS HOST DISEASE
     Route: 042
     Dates: start: 20110508, end: 20110511
  5. ALLOPURINOL [Concomitant]
     Indication: PRODUCT USED FOR UNKNOWN INDICATION
     Route: 065
  6. AMPHOTERICIN B, LIPOSOME [Concomitant]
     Indication: PRODUCT USED FOR UNKNOWN INDICATION
     Route: 065
  7. CASPOFUNGIN [Concomitant]
     Indication: PRODUCT USED FOR UNKNOWN INDICATION
     Route: 065
  8. CICLOSPORIN [Concomitant]
     Indication: PROPHYLAXIS AGAINST GRAFT VERSUS HOST DISEASE
     Route: 065
  9. DAPSONE [Concomitant]
     Indication: PRODUCT USED FOR UNKNOWN INDICATION
     Route: 065
  10. DEFIBROTIDE [Concomitant]
     Indication: PRODUCT USED FOR UNKNOWN INDICATION
     Route: 065
  11. FOLINIC ACID [Concomitant]
     Indication: PRODUCT USED FOR UNKNOWN INDICATION
     Route: 065
  12. HYDROCORTISONE [Concomitant]
     Indication: PRODUCT USED FOR UNKNOWN INDICATION
     Route: 065
  13. IMMUNOGLOBULIN [Concomitant]
     Indication: PRODUCT USED FOR UNKNOWN INDICATION
     Route: 065
  14. ISONIAZID [Concomitant]
     Indication: PRODUCT USED FOR UNKNOWN INDICATION
     Route: 065
  15. LINEZOLID [Concomitant]
     Indication: PRODUCT USED FOR UNKNOWN INDICATION
     Route: 065
  16. MESNA [Concomitant]
     Indication: PRODUCT USED FOR UNKNOWN INDICATION
     Route: 065
  17. METRONIDAZOLE [Concomitant]
     Indication: PRODUCT USED FOR UNKNOWN INDICATION
     Route: 065
  18. OCTREOTIDE [Concomitant]
     Indication: PRODUCT USED FOR UNKNOWN INDICATION
     Route: 065
  19. PARACETAMOL [Concomitant]
     Indication: PRODUCT USED FOR UNKNOWN INDICATION
     Route: 065
  20. PETHIDINE [Concomitant]
     Indication: PRODUCT USED FOR UNKNOWN INDICATION
     Route: 065
  21. PHENYTOIN [Concomitant]
     Indication: PRODUCT USED FOR UNKNOWN INDICATION
     Route: 065
  22. THIOTEPA [Concomitant]
     Indication: PRODUCT USED FOR UNKNOWN INDICATION
     Route: 065

REACTIONS (10)
  - Idiopathic pneumonia syndrome [Fatal]
  - Venoocclusive disease [Fatal]
  - Respiratory failure [Not Recovered/Not Resolved]
  - Bacterial sepsis [Unknown]
  - Cytomegalovirus infection [Recovered/Resolved]
  - Liver disorder [Recovered/Resolved]
  - Mucosal inflammation [Unknown]
  - Pulmonary haemorrhage [Unknown]
  - Pulmonary hypertension [Unknown]
  - Renal impairment [Recovered/Resolved]
